FAERS Safety Report 19697287 (Version 2)
Quarter: 2021Q3

REPORT INFORMATION
  Report Type: Spontaneous
  Country: US (occurrence: US)
  Receive Date: 20210813
  Receipt Date: 20210824
  Transmission Date: 20211014
  Serious: Yes (Other)
  Sender: FDA-Public Use
  Company Number: US-PFIZER INC-1611009

PATIENT
  Age: 10 Year
  Sex: Male

DRUGS (9)
  1. CYTARABINE. [Suspect]
     Active Substance: CYTARABINE
     Indication: ACUTE MYELOID LEUKAEMIA
     Dosage: UNKNOWN
     Route: 037
  2. QUETIAPINE. [Concomitant]
     Active Substance: QUETIAPINE
     Indication: BEHAVIOUR DISORDER
     Dosage: NOT REPORTED
  3. MELATONIN [Concomitant]
     Active Substance: MELATONIN
     Indication: SLEEP DISORDER
     Dosage: NOT REPORTED
  4. GABAPENTIN. [Concomitant]
     Active Substance: GABAPENTIN
     Indication: PAIN
     Dosage: NOT REPORTED
  5. NALOXONE [Concomitant]
     Active Substance: NALOXONE
     Indication: PRODUCT USED FOR UNKNOWN INDICATION
     Dosage: NOT REPORTED
  6. METHADONE [Interacting]
     Active Substance: METHADONE HYDROCHLORIDE
     Indication: GRAFT VERSUS HOST DISEASE
     Dosage: 0.3 MG/KG, UNK
  7. METHYLPREDNISOLONE. [Concomitant]
     Active Substance: METHYLPREDNISOLONE
     Indication: GRAFT VERSUS HOST DISEASE
     Dosage: NOT REPORTED
  8. CLONIDINE. [Concomitant]
     Active Substance: CLONIDINE
     Indication: HYPERTENSION
     Dosage: NOT REPORTED
     Route: 062
  9. LORAZEPAM. [Interacting]
     Active Substance: LORAZEPAM
     Indication: ANXIETY
     Dosage: NOT REPORTED

REACTIONS (5)
  - Cerebral atrophy [Unknown]
  - Drug interaction [Not Recovered/Not Resolved]
  - Renal failure [Unknown]
  - Sleep apnoea syndrome [Not Recovered/Not Resolved]
  - Off label use [Unknown]
